FAERS Safety Report 4763101-4 (Version None)
Quarter: 2005Q3

REPORT INFORMATION
  Report Type: 
  Country: None (occurrence: None)
  Receive Date: 20050826
  Receipt Date: 20041014
  Transmission Date: 20060218
  Serious: Yes (Other)
  Sender: FDA-Public Use
  Company Number: USA-2004-0012339

PATIENT
  Age: 50 Year
  Sex: Male
  Weight: 81.6 kg

DRUGS (2)
  1. OXYCONTIN [Suspect]
  2. XANAX [Suspect]

REACTIONS (1)
  - POLYSUBSTANCE ABUSE [None]
